FAERS Safety Report 8080418-9 (Version None)
Quarter: 2012Q1

REPORT INFORMATION
  Report Type: 
  Country: None (occurrence: None)
  Receive Date: 20120130
  Receipt Date: 20120117
  Transmission Date: 20120608
  Serious: Yes (Other)
  Sender: FDA-Public Use
  Company Number: DE-UCBSA-049895

PATIENT
  Age: 26 Year

DRUGS (6)
  1. LACOSAMIDE [Suspect]
     Dosage: 400 MG PER DAY
     Dates: start: 20081101
  2. FRISIUM [Concomitant]
     Dosage: 20MG/D
     Dates: start: 20100101
  3. LEVETIRACETAM [Suspect]
     Dosage: MAX 6000MG/DAY
     Dates: start: 20081101
  4. FRISIUM [Concomitant]
     Dosage: RESIDUAL DOSE: 5MG/DAY
     Dates: start: 20091226, end: 20100101
  5. FRISIUM [Concomitant]
     Dosage: GRADUAL REDUCTION
     Dates: start: 20091101, end: 20091201
  6. FRISIUM [Concomitant]
     Dosage: 20MG/D
     Dates: start: 20090504, end: 20090101

REACTIONS (3)
  - GRAND MAL CONVULSION [None]
  - SURGERY [None]
  - PARTIAL SEIZURES [None]
